FAERS Safety Report 9408729 (Version 2)
Quarter: 2013Q4

REPORT INFORMATION
  Report Type: Spontaneous
  Country: FR (occurrence: FR)
  Receive Date: 20130718
  Receipt Date: 20131205
  Transmission Date: 20140711
  Serious: Yes (Hospitalization)
  Sender: FDA-Public Use
  Company Number: FR-B.I. PHARMACEUTICALS,INC./RIDGEFIELD-2013-BI-21142YA

PATIENT
  Age: 69 Year
  Sex: Male

DRUGS (8)
  1. MECIR [Suspect]
     Dosage: FORMULATION: ORODISPERSIBLE CR TABLET,
     Dates: start: 20130616
  2. PROGRAF (TACROLIMUS) [Suspect]
     Indication: IMMUNOSUPPRESSION
     Dates: start: 20130613
  3. CELLCEPT [Concomitant]
     Indication: IMMUNOSUPPRESSION
     Dates: start: 20130613
  4. CALCIPARINE (HEPARIN CALCIUM) [Concomitant]
     Dates: start: 20130614
  5. CORTANCYL (PREDNISONE) [Concomitant]
     Dates: start: 20130614
  6. INEXIUM [Concomitant]
     Dates: start: 20130614
  7. LASILIX [Concomitant]
     Dates: start: 20130619
  8. DIFFU K (POTASSIUM CHLORIDE) [Concomitant]
     Dates: start: 20130620

REACTIONS (2)
  - Shock [Recovered/Resolved]
  - Haematoma [Recovered/Resolved]
